FAERS Safety Report 25530707 (Version 1)
Quarter: 2025Q3

REPORT INFORMATION
  Report Type: Spontaneous
  Country: US (occurrence: US)
  Receive Date: 20250708
  Receipt Date: 20250708
  Transmission Date: 20251020
  Serious: Yes (Other)
  Sender: PFIZER
  Company Number: US-PFIZER INC-202500134055

PATIENT
  Weight: 3 kg

DRUGS (1)
  1. MILRINONE [Suspect]
     Active Substance: MILRINONE

REACTIONS (2)
  - Haemodynamic instability [Unknown]
  - Overdose [Unknown]
